FAERS Safety Report 6818783-X (Version None)
Quarter: 2010Q3

REPORT INFORMATION
  Report Type: 
  Country: None (occurrence: None)
  Receive Date: 20100701
  Receipt Date: 20100618
  Transmission Date: 20110219
  Serious: Yes (Death, Life-Threatening, Hospitalization)
  Sender: FDA-Public Use
  Company Number: CLOF-10508

PATIENT
  Age: 9 Year
  Sex: Female
  Weight: 21.4 kg

DRUGS (19)
  1. CLOFARABINE (CLOFARABINE) [Suspect]
     Indication: MYELOID LEUKAEMIA
     Dosage: 28 MG, QD5, INTRAVENOUS, 27 MG, QDX5, INTRAVENOUS, 27 MG, QDX5, INTRAVENOUS
     Route: 042
     Dates: start: 20061121, end: 20061125
  2. CLOFARABINE (CLOFARABINE) [Suspect]
     Indication: MYELOID LEUKAEMIA
     Dosage: 28 MG, QD5, INTRAVENOUS, 27 MG, QDX5, INTRAVENOUS, 27 MG, QDX5, INTRAVENOUS
     Route: 042
     Dates: start: 20070119, end: 20070122
  3. CLOFARABINE (CLOFARABINE) [Suspect]
     Indication: MYELOID LEUKAEMIA
     Dosage: 28 MG, QD5, INTRAVENOUS, 27 MG, QDX5, INTRAVENOUS, 27 MG, QDX5, INTRAVENOUS
     Route: 042
     Dates: start: 20070404, end: 20070407
  4. ETOPOSIDE [Suspect]
     Indication: MYELOID LEUKAEMIA
     Dosage: 32 MG, QD, INTRAVENOUS, 90 MG, QD, INTRAVENOUS, 90 MG, QD, INTRAVENOUS
     Route: 042
     Dates: start: 20061121, end: 20061125
  5. ETOPOSIDE [Suspect]
     Indication: MYELOID LEUKAEMIA
     Dosage: 32 MG, QD, INTRAVENOUS, 90 MG, QD, INTRAVENOUS, 90 MG, QD, INTRAVENOUS
     Route: 042
     Dates: start: 20070119, end: 20070122
  6. ETOPOSIDE [Suspect]
     Indication: MYELOID LEUKAEMIA
     Dosage: 32 MG, QD, INTRAVENOUS, 90 MG, QD, INTRAVENOUS, 90 MG, QD, INTRAVENOUS
     Route: 042
     Dates: start: 20070405, end: 20070408
  7. CYCLOPHOSPHAMIDE [Suspect]
     Indication: MYELOID LEUKAEMIA
     Dosage: 405 MG, QD, INTRAVENOUS, 440 MG, QD, INTRAVENOUS, 400 MG, QD, INTRAVENOUS
     Route: 042
     Dates: start: 20061121, end: 20061125
  8. CYCLOPHOSPHAMIDE [Suspect]
     Indication: MYELOID LEUKAEMIA
     Dosage: 405 MG, QD, INTRAVENOUS, 440 MG, QD, INTRAVENOUS, 400 MG, QD, INTRAVENOUS
     Route: 042
     Dates: start: 20070119, end: 20070122
  9. CYCLOPHOSPHAMIDE [Suspect]
     Indication: MYELOID LEUKAEMIA
     Dosage: 405 MG, QD, INTRAVENOUS, 440 MG, QD, INTRAVENOUS, 400 MG, QD, INTRAVENOUS
     Route: 042
     Dates: start: 20070405, end: 20070408
  10. POTASSIUM CHLORIDE [Concomitant]
  11. MAGNESIUM GLUCONATE (MAGNESIUM GLUCONATE) [Concomitant]
  12. CYPROHEPTADINE HCL [Concomitant]
  13. FILGRASTIM (FILGRASTIM) [Concomitant]
  14. MICAFUNGIN (MICAFUNGIN) [Concomitant]
  15. SULFAMETHOXAZOLE AND TRIMETHOPRIM [Concomitant]
  16. VORICONAZOLE [Concomitant]
  17. PHYTONADIONE [Concomitant]
  18. DOCUSATE-SENNA [Concomitant]
  19. CEPHALEXIN [Concomitant]

REACTIONS (32)
  - ABDOMINAL PAIN [None]
  - ALANINE AMINOTRANSFERASE INCREASED [None]
  - ALPHA HAEMOLYTIC STREPTOCOCCAL INFECTION [None]
  - ANAEMIA [None]
  - ASPARTATE AMINOTRANSFERASE INCREASED [None]
  - BLOOD POTASSIUM DECREASED [None]
  - BLOOD PRESSURE ABNORMAL [None]
  - BRAIN OEDEMA [None]
  - CENTRAL NERVOUS SYSTEM INFECTION [None]
  - CONTUSION [None]
  - CONVULSION [None]
  - COUGH [None]
  - DEPRESSED LEVEL OF CONSCIOUSNESS [None]
  - DIARRHOEA [None]
  - DISSEMINATED INTRAVASCULAR COAGULATION [None]
  - EPISTAXIS [None]
  - GASTROINTESTINAL INFLAMMATION [None]
  - HAEMORRHAGE INTRACRANIAL [None]
  - HEADACHE [None]
  - HYPERNATRAEMIA [None]
  - HYPOPHAGIA [None]
  - HYPOTHALAMO-PITUITARY DISORDER [None]
  - LUNG DISORDER [None]
  - MYDRIASIS [None]
  - NEUROLOGICAL DECOMPENSATION [None]
  - PAIN [None]
  - POSTURING [None]
  - PUPIL FIXED [None]
  - SOMNOLENCE [None]
  - THALAMIC INFARCTION [None]
  - THROMBOCYTOPENIA [None]
  - VOMITING [None]
